FAERS Safety Report 16116388 (Version 1)
Quarter: 2019Q1

REPORT INFORMATION
  Report Type: Spontaneous
  Country: IL (occurrence: IL)
  Receive Date: 20190326
  Receipt Date: 20190326
  Transmission Date: 20190418
  Serious: Yes (Other)
  Sender: FDA-Public Use
  Company Number: IL-TEVA-2019-IL-1029872

PATIENT
  Age: 87 Year
  Sex: Male

DRUGS (2)
  1. PENIBRIN 1 G [Suspect]
     Active Substance: AMPICILLIN
     Dosage: DOSE: 2G
     Route: 042
     Dates: start: 20180803
  2. CIPROFLOXACIN. [Concomitant]
     Active Substance: CIPROFLOXACIN

REACTIONS (4)
  - Dyspnoea [Unknown]
  - Cough [Unknown]
  - Nausea [Unknown]
  - Pruritus generalised [Unknown]

NARRATIVE: CASE EVENT DATE: 20180803
